FAERS Safety Report 10308476 (Version 1)
Quarter: 2014Q3

REPORT INFORMATION
  Report Type: Spontaneous
  Country: GR (occurrence: GR)
  Receive Date: 20140716
  Receipt Date: 20140716
  Transmission Date: 20150326
  Serious: Yes (Other)
  Sender: FDA-Public Use
  Company Number: PHHY2014GR085865

PATIENT
  Age: 51 Year
  Sex: Male

DRUGS (1)
  1. IMATINIB [Suspect]
     Active Substance: IMATINIB
     Indication: GASTROINTESTINAL STROMAL TUMOUR
     Dosage: 400 MG/DAY

REACTIONS (4)
  - Tooth erosion [Unknown]
  - Tooth fracture [Unknown]
  - Dental caries [Unknown]
  - Tooth loss [Unknown]
